FAERS Safety Report 10037408 (Version 1)
Quarter: 2014Q1

REPORT INFORMATION
  Report Type: Spontaneous
  Country: US (occurrence: None)
  Receive Date: 20140306
  Receipt Date: 20140306
  Transmission Date: 20141002
  Serious: Yes (Other)
  Sender: FDA-Public Use
  Company Number: 163-21880-13063985

PATIENT
  Age: 63 Year
  Sex: Male

DRUGS (1)
  1. REVLIMID [Suspect]
     Indication: MONOCLONAL GAMMOPATHY
     Route: 048
     Dates: start: 20130503

REACTIONS (4)
  - Renal failure acute [None]
  - Plasma cell myeloma [None]
  - Hypercalcaemia [None]
  - Rash [None]
